FAERS Safety Report 21608307 (Version 1)
Quarter: 2022Q4

REPORT INFORMATION
  Report Type: Spontaneous
  Country: IT (occurrence: IT)
  Receive Date: 20221117
  Receipt Date: 20221117
  Transmission Date: 20230113
  Serious: Yes (Hospitalization)
  Sender: FDA-Public Use
  Company Number: IT-MYLANLABS-14X-083-1197917-00

PATIENT
  Age: 59 Year
  Sex: Male

DRUGS (8)
  1. ALPRAZOLAM [Suspect]
     Active Substance: ALPRAZOLAM
     Indication: Product used for unknown indication
     Dosage: 20 MG,TOTAL UNK
     Route: 048
     Dates: start: 20140912, end: 20140912
  2. AMISULPRIDE [Suspect]
     Active Substance: AMISULPRIDE
     Indication: Product used for unknown indication
     Dosage: 600 MG, TOTAL UNK
     Route: 048
     Dates: start: 20140912, end: 20140912
  3. LORAZEPAM [Suspect]
     Active Substance: LORAZEPAM
     Indication: Product used for unknown indication
     Dosage: 165 MG TOTAL, UNK
     Route: 048
     Dates: start: 20140912, end: 20140912
  4. SEROQUEL [Suspect]
     Active Substance: QUETIAPINE FUMARATE
     Indication: Product used for unknown indication
     Dosage: 60 DF, TOTAL UNK
     Route: 048
     Dates: start: 20140912, end: 20140912
  5. FLURAZEPAM MONOHYDROCHLORIDE [Suspect]
     Active Substance: FLURAZEPAM MONOHYDROCHLORIDE
     Indication: Product used for unknown indication
     Dosage: 30 DF,TOTAL UNK
     Route: 048
     Dates: start: 20140912, end: 20140912
  6. FLUVOXAMINE MALEATE [Concomitant]
     Active Substance: FLUVOXAMINE MALEATE
     Indication: Product used for unknown indication
     Dosage: 3200 MG, TOTALUNK
     Route: 048
     Dates: start: 20140912, end: 20140912
  7. POTASSIUM CHLORIDE [Concomitant]
     Active Substance: POTASSIUM CHLORIDE
     Indication: Product used for unknown indication
     Dosage: 70 DF,TOTAL UNK
     Route: 048
     Dates: start: 20140912, end: 20140912
  8. ENALAPRIL [Concomitant]
     Active Substance: ENALAPRIL
     Indication: Product used for unknown indication
     Dosage: 960MG, TOTAL UNK
     Route: 048
     Dates: start: 20140912, end: 20140912

REACTIONS (2)
  - Sopor [Recovering/Resolving]
  - Drug abuse [Recovering/Resolving]

NARRATIVE: CASE EVENT DATE: 20140912
